FAERS Safety Report 12769207 (Version 2)
Quarter: 2016Q4

REPORT INFORMATION
  Report Type: Spontaneous
  Country: GB (occurrence: GB)
  Receive Date: 20160921
  Receipt Date: 20161122
  Transmission Date: 20170207
  Serious: Yes (Other)
  Sender: FDA-Public Use
  Company Number: GB-BIOGEN-2016BI00292938

PATIENT
  Sex: Female

DRUGS (3)
  1. TECFIDERA [Suspect]
     Active Substance: DIMETHYL FUMARATE
     Indication: MULTIPLE SCLEROSIS
     Dosage: MAINTENANCE DOSE
     Route: 065
     Dates: start: 20160331
  2. ACICLOVIR [Concomitant]
     Active Substance: ACYCLOVIR
     Indication: HERPES ZOSTER
     Route: 065
  3. ACICLOVIR [Concomitant]
     Active Substance: ACYCLOVIR
     Route: 065

REACTIONS (1)
  - Herpes zoster [Recovered/Resolved]

NARRATIVE: CASE EVENT DATE: 20160501
